FAERS Safety Report 18037578 (Version 2)
Quarter: 2020Q3

REPORT INFORMATION
  Report Type: Spontaneous
  Country: US (occurrence: US)
  Receive Date: 20200717
  Receipt Date: 20200804
  Transmission Date: 20201103
  Serious: No
  Sender: FDA-Public Use
  Company Number: US-PFIZER INC-2020270357

PATIENT
  Age: 80 Year
  Sex: Female

DRUGS (1)
  1. PREMARIN [Suspect]
     Active Substance: ESTROGENS, CONJUGATED
     Indication: ATROPHIC VULVOVAGINITIS
     Dosage: UNK, 2X/WEEK (MAY PLACE A ONE?INCH RIBBON ON FINGER INTO VAGINA TWICE WEEKLY AT BEDTIME)
     Route: 067

REACTIONS (2)
  - Hypoacusis [Unknown]
  - Off label use [Unknown]
